FAERS Safety Report 15432186 (Version 7)
Quarter: 2019Q4

REPORT INFORMATION
  Report Type: Report from Study
  Country: US (occurrence: US)
  Receive Date: 20180926
  Receipt Date: 20191227
  Transmission Date: 20200122
  Serious: Yes (Other)
  Sender: FDA-Public Use
  Company Number: PHEH2018US039998

PATIENT
  Age: 50 Year
  Sex: Female

DRUGS (1)
  1. GILENYA [Suspect]
     Active Substance: FINGOLIMOD HYDROCHLORIDE
     Indication: MULTIPLE SCLEROSIS
     Dosage: 0.5 MG, QD
     Route: 048
     Dates: start: 20180904

REACTIONS (25)
  - Chronic obstructive pulmonary disease [Recovering/Resolving]
  - Nausea [Unknown]
  - Thyroid cyst [Not Recovered/Not Resolved]
  - Chest discomfort [Unknown]
  - Diarrhoea [Recovering/Resolving]
  - Multiple sclerosis relapse [Unknown]
  - Chronic obstructive pulmonary disease [Unknown]
  - Hepatic cyst [Unknown]
  - Sinus disorder [Unknown]
  - Dyspnoea [Recovering/Resolving]
  - Sinusitis [Recovered/Resolved]
  - Abdominal tenderness [Unknown]
  - Constipation [Recovering/Resolving]
  - Headache [Recovering/Resolving]
  - Musculoskeletal chest pain [Not Recovered/Not Resolved]
  - Muscle spasms [Unknown]
  - Concomitant disease aggravated [Not Recovered/Not Resolved]
  - Fatigue [Recovering/Resolving]
  - Concomitant disease aggravated [Unknown]
  - Abdominal pain [Recovering/Resolving]
  - White blood cell count decreased [Not Recovered/Not Resolved]
  - Impaired gastric emptying [Unknown]
  - Liver disorder [Unknown]
  - Pancreatic enzymes increased [Unknown]
  - Decreased appetite [Unknown]

NARRATIVE: CASE EVENT DATE: 20180904
